FAERS Safety Report 9220807 (Version 1)
Quarter: 2013Q2

REPORT INFORMATION
  Report Type: Spontaneous
  Country: JP (occurrence: JP)
  Receive Date: 20130409
  Receipt Date: 20130409
  Transmission Date: 20140414
  Serious: Yes (Other)
  Sender: FDA-Public Use
  Company Number: JP-BAYER-2011-082858

PATIENT
  Age: 64 Year
  Sex: Male

DRUGS (1)
  1. NEXAVAR [Suspect]
     Indication: HEPATOCELLULAR CARCINOMA
     Dosage: 200 MG, BID
     Route: 048
     Dates: start: 20110722

REACTIONS (7)
  - Cholangitis [None]
  - Diverticulum intestinal haemorrhagic [None]
  - Bile duct stenosis [None]
  - Metastases to adrenals [None]
  - Enanthema [Not Recovered/Not Resolved]
  - Pyrexia [None]
  - Jaundice [None]
